FAERS Safety Report 20327992 (Version 2)
Quarter: 2022Q1

REPORT INFORMATION
  Report Type: Spontaneous
  Country: CA (occurrence: CA)
  Receive Date: 20220112
  Receipt Date: 20220218
  Transmission Date: 20220423
  Serious: Yes (Death, Hospitalization, Other)
  Sender: FDA-Public Use
  Company Number: CA-AMGEN-CANSP2022000845

PATIENT

DRUGS (3)
  1. XGEVA [Suspect]
     Active Substance: DENOSUMAB
     Indication: Prostate cancer metastatic
     Dosage: UNK
     Route: 065
  2. ABIRATERONE ACETATE [Concomitant]
     Active Substance: ABIRATERONE ACETATE
     Indication: Prostate cancer metastatic
  3. ENZALUTAMIDE [Concomitant]
     Active Substance: ENZALUTAMIDE
     Indication: Prostate cancer metastatic

REACTIONS (19)
  - Toxicity to various agents [Unknown]
  - Death [Fatal]
  - Seizure [Unknown]
  - Arrhythmia [Unknown]
  - Cardiac failure [Unknown]
  - Hypervolaemia [Unknown]
  - Myocardial ischaemia [Unknown]
  - Diabetes mellitus [Unknown]
  - Hyperglycaemia [Unknown]
  - Liver disorder [Unknown]
  - Neutropenia [Unknown]
  - Urinary tract infection [Unknown]
  - Hypertension [Unknown]
  - Myocardial infarction [Unknown]
  - Haematuria [Unknown]
  - Hypokalaemia [Unknown]
  - Anaemia [Unknown]
  - Constipation [Unknown]
  - Arthralgia [Unknown]
